FAERS Safety Report 8578085-0 (Version None)
Quarter: 2012Q3

REPORT INFORMATION
  Report Type: 
  Country: None (occurrence: None)
  Receive Date: 20120726
  Receipt Date: 20120621
  Transmission Date: 20120928
  Serious: Yes (Hospitalization)
  Sender: FDA-Public Use
  Company Number: DSA_57486_2012

PATIENT
  Sex: Male

DRUGS (4)
  1. TEBOKAN [Concomitant]
  2. WELLBUTRIN SR [Suspect]
     Indication: DEPRESSION
     Dosage: 300 MG DAILY ORAL, 150 MG DAILY, ORAL
     Route: 048
     Dates: start: 20110818, end: 20120101
  3. WELLBUTRIN SR [Suspect]
     Indication: DEPRESSION
     Dosage: 300 MG DAILY ORAL, 150 MG DAILY, ORAL
     Route: 048
     Dates: start: 20120501
  4. WELLBUTRIN SR [Suspect]
     Indication: DEPRESSION
     Dosage: 300 MG DAILY ORAL, 150 MG DAILY, ORAL
     Route: 048
     Dates: start: 20120101, end: 20120501

REACTIONS (5)
  - TRANSIENT ISCHAEMIC ATTACK [None]
  - HEMIPLEGIA [None]
  - MEMORY IMPAIRMENT [None]
  - PAIN IN EXTREMITY [None]
  - HYPERTENSION [None]
